FAERS Safety Report 9339283 (Version 3)
Quarter: 2013Q3

REPORT INFORMATION
  Report Type: Spontaneous
  Country: US (occurrence: US)
  Receive Date: 20130610
  Receipt Date: 20130722
  Transmission Date: 20140515
  Serious: No
  Sender: FDA-Public Use
  Company Number: US-JNJFOC-20130417748

PATIENT
  Sex: Female

DRUGS (3)
  1. BENGAY ZERO DEGREES MENTHOL PAIN RELIEVING [Suspect]
     Indication: PRODUCT USED FOR UNKNOWN INDICATION
     Route: 061
  2. TYLENOL UNSPECIFIED [Concomitant]
     Indication: PAIN
     Route: 065
  3. BENGAY UNSPECIFIED [Concomitant]
     Indication: PAIN
     Route: 065

REACTIONS (2)
  - Muscle spasms [Unknown]
  - Burning sensation [Unknown]
